FAERS Safety Report 18415972 (Version 2)
Quarter: 2020Q4

REPORT INFORMATION
  Report Type: Other
  Country: CZ (occurrence: CZ)
  Receive Date: 20201022
  Receipt Date: 20201026
  Transmission Date: 20210114
  Serious: Yes (Hospitalization)
  Sender: FDA-Public Use
  Company Number: CZ-ROCHE-2697694

PATIENT

DRUGS (7)
  1. PREDNISONE. [Concomitant]
     Active Substance: PREDNISONE
     Indication: GLOMERULONEPHRITIS MEMBRANOUS
     Dosage: REPEATED THERAPY WITH PREDNISONE 20 MG WITH TAPERING THE DOSE AND INTERRUPTION DURING SIX MONTHS
  2. HUMAN IMMUNOGLOBULIN [Concomitant]
     Dosage: REPEATEDLY REPLACED
  3. RITUXIMAB. [Suspect]
     Active Substance: RITUXIMAB
     Dosage: FURTHER DOSE OF RITUXIMAB WAS ADMINISTERED
     Route: 042
     Dates: start: 201910
  4. RITUXIMAB. [Suspect]
     Active Substance: RITUXIMAB
     Indication: GLOMERULONEPHRITIS MEMBRANOUS
     Dosage: 2X1000MG/14 DAYS
     Route: 042
  5. APIXABAN [Concomitant]
     Active Substance: APIXABAN
     Indication: ANTICOAGULANT THERAPY
     Dosage: FULL DOSE
  6. METHYLPREDNISOLONE. [Concomitant]
     Active Substance: METHYLPREDNISOLONE
     Indication: GLOMERULONEPHRITIS MEMBRANOUS
     Dosage: PULSES ON A DAILY BASIS (1.5 G I.V. IN TOTAL)
     Route: 042
  7. NADROPARIN [Concomitant]
     Active Substance: NADROPARIN
     Indication: ANTICOAGULANT THERAPY

REACTIONS (8)
  - Pneumonia [Unknown]
  - Glomerulonephritis membranous [Recovering/Resolving]
  - Intentional product use issue [Unknown]
  - Pulmonary embolism [Recovering/Resolving]
  - Renal vein thrombosis [Recovering/Resolving]
  - Therapeutic response decreased [Unknown]
  - Off label use [Unknown]
  - Disease progression [Recovering/Resolving]
